FAERS Safety Report 7339049-8 (Version None)
Quarter: 2011Q1

REPORT INFORMATION
  Report Type: 
  Country: None (occurrence: None)
  Receive Date: 20110308
  Receipt Date: 20110223
  Transmission Date: 20110831
  Serious: Yes (Hospitalization)
  Sender: FDA-Public Use
  Company Number: FR-ELI_LILLY_AND_COMPANY-FR201102007082

PATIENT
  Sex: Female

DRUGS (5)
  1. ALCOHOL [Concomitant]
  2. CYMBALTA [Suspect]
     Indication: DEPRESSION
     Dosage: 60 MG, UNK
     Route: 048
  3. ALPRAZOLAM [Concomitant]
     Dosage: 0.25 MG, UNK
     Route: 048
     Dates: start: 20101204, end: 20101204
  4. ZOLPIDEM [Concomitant]
     Dosage: 1 D/F, UNK
     Route: 048
     Dates: start: 20101204, end: 20101204
  5. CYMBALTA [Suspect]
     Dosage: UNK, UNKNOWN
     Dates: start: 20101204, end: 20101204

REACTIONS (7)
  - INTENTIONAL OVERDOSE [None]
  - PROTHROMBIN TIME PROLONGED [None]
  - FACTOR VII DEFICIENCY [None]
  - SUICIDE ATTEMPT [None]
  - ACTIVATED PARTIAL THROMBOPLASTIN TIME PROLONGED [None]
  - COAGULOPATHY [None]
  - FACTOR X DEFICIENCY [None]
